FAERS Safety Report 7487478-4 (Version None)
Quarter: 2011Q2

REPORT INFORMATION
  Report Type: 
  Country: None (occurrence: None)
  Receive Date: 20110510
  Receipt Date: 20110425
  Transmission Date: 20111010
  Serious: Yes (Disabling)
  Sender: FDA-Public Use
  Company Number: AUR-APL-2011-01479

PATIENT
  Sex: Female

DRUGS (2)
  1. VENLAFAXINE HCL [Suspect]
  2. EFFEXOR XR [Suspect]

REACTIONS (6)
  - CONDITION AGGRAVATED [None]
  - DRUG EFFECT DECREASED [None]
  - PRODUCT SUBSTITUTION ISSUE [None]
  - IRRITABILITY [None]
  - DEPRESSION [None]
  - MULTIPLE INJURIES [None]
